FAERS Safety Report 5019838-5 (Version None)
Quarter: 2006Q2

REPORT INFORMATION
  Report Type: 
  Country: None (occurrence: None)
  Receive Date: 20060605
  Receipt Date: 20060605
  Transmission Date: 20061013
  Serious: No
  Sender: FDA-Public Use
  Company Number: None

PATIENT
  Age: 76 Year
  Sex: Female
  Weight: 61 kg

DRUGS (1)
  1. MEGACE [Suspect]
     Indication: DECREASED APPETITE
     Dosage: 400 MG/10 ML PO BID
     Route: 048

REACTIONS (1)
  - DEEP VEIN THROMBOSIS [None]
